FAERS Safety Report 6497221-3 (Version None)
Quarter: 2009Q4

REPORT INFORMATION
  Report Type: 
  Country: None (occurrence: None)
  Receive Date: 20091215
  Receipt Date: 20090626
  Transmission Date: 20100525
  Serious: No
  Sender: FDA-Public Use
  Company Number: A0793985A

PATIENT
  Age: 60 Year
  Sex: Male

DRUGS (4)
  1. AVODART [Suspect]
     Indication: BENIGN PROSTATIC HYPERPLASIA
     Dosage: .5MG PER DAY
     Route: 048
     Dates: start: 20090619
  2. FLAX SEED OIL [Concomitant]
  3. MAGNESIUM [Concomitant]
  4. MULTI-VITAMIN [Concomitant]

REACTIONS (3)
  - DISTURBANCE IN ATTENTION [None]
  - HEADACHE [None]
  - LETHARGY [None]
